FAERS Safety Report 5449255-5 (Version None)
Quarter: 2007Q3

REPORT INFORMATION
  Report Type: 
  Country: None (occurrence: None)
  Receive Date: 20070911
  Receipt Date: 20070831
  Transmission Date: 20080115
  Serious: Yes (Disabling)
  Sender: FDA-Public Use
  Company Number: IT-SHR-IT-2007-026547

PATIENT
  Age: 35 Year
  Sex: Male

DRUGS (2)
  1. BETAFERON [Suspect]
     Indication: RELAPSING-REMITTING MULTIPLE SCLEROSIS
     Dosage: 16 MIU, EVERY 2D
     Route: 058
     Dates: start: 20051122, end: 20060715
  2. BETAFERON [Suspect]
     Dosage: 0,5 ML, EVERY 2D
     Route: 058
     Dates: start: 20060717, end: 20060801

REACTIONS (1)
  - PSYCHOTIC DISORDER [None]
